FAERS Safety Report 6029745-7 (Version None)
Quarter: 2008Q4

REPORT INFORMATION
  Report Type: 
  Country: None (occurrence: None)
  Receive Date: 20081222
  Receipt Date: 20080915
  Transmission Date: 20090506
  Serious: No
  Sender: FDA-Public Use
  Company Number: US-WYE-H06016408

PATIENT
  Age: 56 Year
  Sex: Female
  Weight: 52.66 kg

DRUGS (6)
  1. PRISTIQ [Suspect]
     Indication: ANXIETY
     Dosage: 50 MG 1X PER 1 DAY, ORAL
     Route: 048
     Dates: start: 20080901
  2. PRISTIQ [Suspect]
     Indication: DEPRESSION
     Dosage: 50 MG 1X PER 1 DAY, ORAL
     Route: 048
     Dates: start: 20080901
  3. PRISTIQ [Suspect]
     Indication: NERVOUSNESS
     Dosage: 50 MG 1X PER 1 DAY, ORAL
     Route: 048
     Dates: start: 20080901
  4. CLONAZEPAM [Concomitant]
  5. ENALAPRIL MALEATE [Concomitant]
  6. PREVACID [Concomitant]

REACTIONS (2)
  - DEFAECATION URGENCY [None]
  - DIARRHOEA [None]
